FAERS Safety Report 7494655-5 (Version None)
Quarter: 2011Q2

REPORT INFORMATION
  Report Type: 
  Country: None (occurrence: None)
  Receive Date: 20110520
  Receipt Date: 20091122
  Transmission Date: 20111010
  Serious: Yes (Death, Other)
  Sender: FDA-Public Use
  Company Number: US-BAYER-200940363NA

PATIENT
  Age: 69 Year
  Sex: Male
  Weight: 130 kg

DRUGS (19)
  1. CEPHALEXIN [Concomitant]
     Dosage: 500 MG, UNK
     Route: 048
  2. AMOXIL [Concomitant]
     Dosage: 500 MG, UNK
     Route: 048
  3. SPIRONOLACTONE [Concomitant]
     Dosage: 50 MG, UNK
     Route: 048
  4. GLUCOPHAGE [Concomitant]
     Dosage: 500 MG, BID
     Route: 048
  5. TRASYLOL [Suspect]
     Indication: CARDIAC OPERATION
     Route: 042
     Dates: start: 20051027
  6. INSULIN [Concomitant]
     Route: 058
  7. AVANDIA [Concomitant]
     Dosage: 4 MG, QD
     Route: 048
  8. NOVOLIN R [Concomitant]
     Route: 058
  9. IBUPROFEN [Concomitant]
     Route: 048
  10. COUMADIN [Concomitant]
     Dosage: 7.5 MG, UNK
     Route: 048
  11. LASIX [Concomitant]
     Dosage: 80 MG, UNK
     Route: 048
  12. AMITIZA [Concomitant]
     Dosage: 24 MCG
     Route: 048
  13. HUMALOG [Concomitant]
     Dosage: 200 MG, UNK
     Route: 048
  14. GLUCOTROL XL [Concomitant]
     Dosage: 5 MG, QD
     Route: 048
  15. CEPHALEXIN [Concomitant]
     Dosage: 500 MG, UNK
     Route: 048
  16. VYTORIN [Concomitant]
  17. GLIPIZIDE [Concomitant]
     Dosage: 5 MG, UNK
     Route: 048
  18. HUMULIN 70/30 [Concomitant]
  19. ATENOLOL [Concomitant]
     Dosage: 50 MG, UNK
     Route: 048

REACTIONS (16)
  - CEREBROVASCULAR ACCIDENT [None]
  - UNEVALUABLE EVENT [None]
  - EMOTIONAL DISTRESS [None]
  - MULTI-ORGAN FAILURE [None]
  - RENAL INJURY [None]
  - PAIN [None]
  - INJURY [None]
  - RENAL IMPAIRMENT [None]
  - DEATH [None]
  - RENAL FAILURE [None]
  - STRESS [None]
  - ANXIETY [None]
  - RENAL DISORDER [None]
  - FEAR [None]
  - ANHEDONIA [None]
  - BLINDNESS UNILATERAL [None]
